FAERS Safety Report 7363627-3 (Version None)
Quarter: 2011Q1

REPORT INFORMATION
  Report Type: 
  Country: None (occurrence: None)
  Receive Date: 20110321
  Receipt Date: 20110317
  Transmission Date: 20110831
  Serious: Yes (Other)
  Sender: FDA-Public Use
  Company Number: US-PFIZER INC-2011059389

PATIENT
  Sex: Female
  Weight: 54.422 kg

DRUGS (4)
  1. PREMARIN [Concomitant]
     Indication: MENOPAUSAL SYMPTOMS
     Dosage: 0.625 MG, 1X/DAY AT BEDTIME
  2. CHANTIX [Suspect]
     Indication: SMOKING CESSATION THERAPY
     Dosage: 0.5 MG, 1X/DAY
     Route: 048
     Dates: start: 20101201, end: 20101201
  3. MS CONTIN [Concomitant]
     Indication: SCIATICA
     Dosage: 30 MG, 2X/DAY
  4. CHANTIX [Suspect]
     Dosage: 1 MG, 2X/DAY
     Dates: start: 20101201, end: 20101201

REACTIONS (7)
  - ARTHRALGIA [None]
  - ARTHRITIS [None]
  - FEELING COLD [None]
  - MUSCULOSKELETAL PAIN [None]
  - INFLAMMATORY MARKER INCREASED [None]
  - HYPOKINESIA [None]
  - INFLAMMATION [None]
